FAERS Safety Report 15140502 (Version 1)
Quarter: 2018Q3

REPORT INFORMATION
  Report Type: Spontaneous
  Country: US (occurrence: US)
  Receive Date: 20180618
  Receipt Date: 20180618
  Transmission Date: 20181010
  Serious: No
  Sender: FDA-Public Use
  Company Number: None

PATIENT
  Age: 57 Year
  Sex: Female
  Weight: 92.99 kg

DRUGS (1)
  1. DAPTOMYCIN 1GRAM HOSPIRA [Suspect]
     Active Substance: DAPTOMYCIN
     Indication: STAPHYLOCOCCAL INFECTION
     Route: 042
     Dates: start: 20180104, end: 20180104

REACTIONS (1)
  - Chills [None]

NARRATIVE: CASE EVENT DATE: 20180104
